FAERS Safety Report 24163947 (Version 2)
Quarter: 2024Q3

REPORT INFORMATION
  Report Type: Spontaneous
  Country: US (occurrence: US)
  Receive Date: 20240801
  Receipt Date: 20240801
  Transmission Date: 20241016
  Serious: No
  Sender: UPSHER-SMITH
  Company Number: US-UPSHER-SMITH LABORATORIES, LLC-2024USL00480

PATIENT

DRUGS (4)
  1. VIGADRONE [Suspect]
     Active Substance: VIGABATRIN
     Indication: Infantile spasms
     Dosage: UNK
     Route: 048
     Dates: start: 20240510, end: 2024
  2. VIGADRONE [Suspect]
     Active Substance: VIGABATRIN
     Dosage: 875 MG (17.5 ML), 2X/DAY
     Route: 048
     Dates: start: 2024, end: 202406
  3. VIGADRONE [Suspect]
     Active Substance: VIGABATRIN
     Dosage: 1000 MG (20 ML), 2X/DAY
     Route: 048
     Dates: start: 202406, end: 202406
  4. VIGADRONE [Suspect]
     Active Substance: VIGABATRIN
     Dosage: 875 MG (17.5 ML), 2X/DAY
     Route: 048
     Dates: start: 202406

REACTIONS (6)
  - Urine odour abnormal [Unknown]
  - Eye movement disorder [Not Recovered/Not Resolved]
  - Feeling drunk [Not Recovered/Not Resolved]
  - Fall [Not Recovered/Not Resolved]
  - Sedation [Not Recovered/Not Resolved]
  - Overdose [Recovered/Resolved]

NARRATIVE: CASE EVENT DATE: 20240101
